FAERS Safety Report 23231169 (Version 1)
Quarter: 2023Q4

REPORT INFORMATION
  Report Type: Spontaneous
  Country: NL (occurrence: NL)
  Receive Date: 20231127
  Receipt Date: 20231127
  Transmission Date: 20240109
  Serious: Yes (Hospitalization)
  Sender: FDA-Public Use
  Company Number: NL-BAXTER-2023BAX035502

PATIENT
  Age: 50 Year
  Sex: Female
  Weight: 60 kg

DRUGS (15)
  1. DOXORUBICIN [Suspect]
     Active Substance: DOXORUBICIN
     Indication: Diffuse large B-cell lymphoma stage IV
     Dosage: 83 MILLIGRAM EVERY 3 WEEKS, ONGOING
     Route: 042
     Dates: start: 20230927
  2. PREDNISONE [Suspect]
     Active Substance: PREDNISONE
     Indication: Diffuse large B-cell lymphoma stage IV
     Dosage: 100 MILLIGRAM, DAILY,( C1-6, DAYS 1-5 OF EACH CYCLE, EVERY 1 DAYS, ONGOING)
     Route: 048
     Dates: start: 20230927
  3. CYCLOPHOSPHAMIDE [Suspect]
     Active Substance: CYCLOPHOSPHAMIDE
     Indication: Diffuse large B-cell lymphoma stage IV
     Dosage: 1245 MILLIGRAM, EVERY 3 WEEKS, ONGOING
     Route: 042
     Dates: start: 20230927
  4. EPCORITAMAB [Suspect]
     Active Substance: EPCORITAMAB
     Indication: Diffuse large B-cell lymphoma stage IV
     Dosage: 0.16 MILLIGRAM, (0.16 MG, PRIMING DOSE; C1, D1, TOTAL)
     Route: 058
     Dates: start: 20230927, end: 20230927
  5. EPCORITAMAB [Suspect]
     Active Substance: EPCORITAMAB
     Dosage: 0.16 MILLIGRAM, (0.16 MG, RE-PRIMING DOSE, TOTAL)
     Route: 058
     Dates: start: 20231011, end: 20231011
  6. EPCORITAMAB [Suspect]
     Active Substance: EPCORITAMAB
     Dosage: 48 MILLIGRAM, (48 MG, FULL DOSE; C1, D15 + 22, EVERY 1 WEEKS)
     Route: 058
     Dates: start: 20231030
  7. EPCORITAMAB [Suspect]
     Active Substance: EPCORITAMAB
     Dosage: 0.8 MILLIGRAM, (0.8 MG, INTERMEDIATE DOSE, TOTAL)
     Route: 058
     Dates: start: 20231018, end: 20231018
  8. RITUXIMAB [Suspect]
     Active Substance: RITUXIMAB
     Indication: Diffuse large B-cell lymphoma stage IV
     Dosage: 622.5 MILLIGRAM, (EVERY 3 WEEKS, ONGOING)
     Route: 042
     Dates: start: 20230927
  9. VINCRISTINE [Suspect]
     Active Substance: VINCRISTINE
     Indication: Diffuse large B-cell lymphoma stage IV
     Dosage: 2 MILLIGRAM, EVERY 3 WEEKS, ONGOING
     Route: 042
     Dates: start: 20230927
  10. PEGFILGRASTIM [Concomitant]
     Active Substance: PEGFILGRASTIM
     Indication: Neutropenia
     Dosage: 0.6 MILLILITER, EVERY 3 WEEKS
     Route: 065
     Dates: start: 20230928
  11. ALLOPURINOL [Concomitant]
     Active Substance: ALLOPURINOL
     Indication: Prophylaxis
     Dosage: 300 MILLIGRAM, ONCE A DAY
     Route: 065
     Dates: start: 20230927
  12. SULFAMETHOXAZOLE\TRIMETHOPRIM [Concomitant]
     Active Substance: SULFAMETHOXAZOLE\TRIMETHOPRIM
     Indication: Antifungal prophylaxis
     Dosage: 480 MILLIGRAM, ONCE A DAY
     Route: 065
     Dates: start: 20230927
  13. DEXAMETHASONE [Concomitant]
     Active Substance: DEXAMETHASONE
     Indication: Prophylaxis
     Dosage: 16 MILLIGRAM, ONCE A DAY
     Route: 065
     Dates: start: 20231011
  14. ACETAMINOPHEN [Concomitant]
     Active Substance: ACETAMINOPHEN
     Indication: Chemotherapy side effect prophylaxis
     Dosage: 1000 MILLIGRAM, CYCLICAL
     Route: 065
     Dates: start: 20230927
  15. PANTOPRAZOLE SODIUM [Concomitant]
     Active Substance: PANTOPRAZOLE SODIUM
     Indication: Prophylaxis against gastrointestinal ulcer
     Dosage: 40 MILLIGRAM, ONCE A DAY
     Route: 065
     Dates: start: 20230927

REACTIONS (2)
  - Pyrexia [Not Recovered/Not Resolved]
  - Oral herpes [Not Recovered/Not Resolved]

NARRATIVE: CASE EVENT DATE: 20231025
